FAERS Safety Report 24085974 (Version 5)
Quarter: 2024Q3

REPORT INFORMATION
  Report Type: Spontaneous
  Country: FR (occurrence: FR)
  Receive Date: 20240712
  Receipt Date: 20240904
  Transmission Date: 20241016
  Serious: Yes (Other)
  Sender: PFIZER
  Company Number: None

PATIENT
  Age: 20 Year
  Sex: Female

DRUGS (16)
  1. ADCETRIS [Suspect]
     Active Substance: BRENTUXIMAB VEDOTIN
     Indication: Hodgkin^s disease stage IV
     Dosage: UNK UNK, Q3WEEKS
     Route: 042
     Dates: start: 20230215, end: 20230420
  2. ADCETRIS [Suspect]
     Active Substance: BRENTUXIMAB VEDOTIN
     Dosage: UNK
     Route: 042
     Dates: start: 20230215
  3. CYTARABINE [Suspect]
     Active Substance: CYTARABINE
     Indication: Hodgkin^s disease stage IV
     Dosage: 1 DOSAGE FORM, QD
     Route: 042
     Dates: start: 20230526, end: 20230529
  4. CYTARABINE [Suspect]
     Active Substance: CYTARABINE
     Dosage: UNK
     Route: 065
     Dates: start: 20230601
  5. DOXORUBICIN HYDROCHLORIDE [Suspect]
     Active Substance: DOXORUBICIN HYDROCHLORIDE
     Indication: Hodgkin^s disease stage IV
     Dosage: UNK
     Route: 042
     Dates: start: 202209, end: 202211
  6. NIVOLUMAB [Suspect]
     Active Substance: NIVOLUMAB
     Indication: Hodgkin^s disease stage IV
     Dosage: UNK UNK, Q3WEEKS
     Route: 042
     Dates: start: 20230215, end: 20230420
  7. PREDNISONE [Suspect]
     Active Substance: PREDNISONE
     Indication: Hodgkin^s disease stage IV
     Dosage: 40 MILLIGRAM/SQ. METER
     Route: 048
     Dates: start: 202209, end: 202212
  8. PREDNISONE [Suspect]
     Active Substance: PREDNISONE
     Dosage: UNK
  9. MELPHALAN [Suspect]
     Active Substance: MELPHALAN
     Indication: Hodgkin^s disease stage IV
     Dosage: 1 DF
     Route: 042
     Dates: start: 20230530, end: 20230530
  10. MELPHALAN [Suspect]
     Active Substance: MELPHALAN
     Dosage: UNK
     Route: 042
     Dates: start: 20230601, end: 20230601
  11. CARMUSTINE [Suspect]
     Active Substance: CARMUSTINE
     Indication: Hodgkin^s disease stage IV
     Dosage: 1 DF
     Route: 042
     Dates: start: 20220602, end: 20220602
  12. CARMUSTINE [Suspect]
     Active Substance: CARMUSTINE
     Dosage: UNK
     Route: 065
     Dates: start: 20230601, end: 20230601
  13. DACARBAZINE [Suspect]
     Active Substance: DACARBAZINE
     Indication: Hodgkin^s disease stage IV
     Dosage: UNK
     Route: 042
     Dates: start: 20221205, end: 20221208
  14. ONCOVIN [Suspect]
     Active Substance: VINCRISTINE SULFATE
     Indication: Hodgkin^s disease stage IV
     Dosage: UNK
     Route: 042
     Dates: start: 202209, end: 202211
  15. ETOPOSIDE [Suspect]
     Active Substance: ETOPOSIDE
     Indication: Hodgkin^s disease stage IV
     Dosage: UNK
     Route: 042
     Dates: start: 202209, end: 202211
  16. CYCLOPHOSPHAMIDE [Suspect]
     Active Substance: CYCLOPHOSPHAMIDE
     Indication: Hodgkin^s disease stage IV
     Dosage: UNK
     Route: 042
     Dates: start: 20221205, end: 20221208

REACTIONS (3)
  - Osteonecrosis [Not Recovered/Not Resolved]
  - Femur fracture [Not Recovered/Not Resolved]
  - Off label use [Unknown]

NARRATIVE: CASE EVENT DATE: 20230526
